FAERS Safety Report 4722893-0 (Version None)
Quarter: 2005Q3

REPORT INFORMATION
  Report Type: 
  Country: None (occurrence: None)
  Receive Date: 20050722
  Receipt Date: 20050720
  Transmission Date: 20060218
  Serious: Yes (Life-Threatening)
  Sender: FDA-Public Use
  Company Number: JP-BOEHRINGER INGELHEIM PHARMACEUTICALS, INC.-2005-BP-12357NB

PATIENT
  Age: 84 Year
  Sex: Male

DRUGS (9)
  1. MOBIC [Suspect]
     Indication: BACK PAIN
     Route: 048
     Dates: start: 20050621, end: 20050627
  2. FK [Concomitant]
     Route: 048
  3. DOGMATYL [Concomitant]
     Route: 048
  4. ONON [Concomitant]
     Route: 048
  5. THEOLONG [Concomitant]
     Route: 048
  6. PROTECADIN [Concomitant]
     Route: 048
  7. MUCOSAL [Concomitant]
     Route: 048
  8. PANVITAN [Concomitant]
     Route: 048
  9. DEPROMEL [Concomitant]
     Route: 048

REACTIONS (1)
  - GENERALISED OEDEMA [None]
